FAERS Safety Report 4587374-6 (Version None)
Quarter: 2005Q1

REPORT INFORMATION
  Report Type: 
  Country: None (occurrence: None)
  Receive Date: 20050216
  Receipt Date: 20050203
  Transmission Date: 20050727
  Serious: Yes (Other)
  Sender: FDA-Public Use
  Company Number: US-JNJFOC-20040305591

PATIENT
  Sex: Female
  Weight: 93.44 kg

DRUGS (13)
  1. REMICADE [Suspect]
     Route: 042
  2. REMICADE [Suspect]
     Route: 042
  3. REMICADE [Suspect]
     Indication: RHEUMATOID ARTHRITIS
     Route: 042
  4. OMEPRAZOLE [Concomitant]
  5. DIOVAN [Concomitant]
  6. INSULIN [Concomitant]
  7. PREDNISONE [Concomitant]
  8. ASPRIN [Concomitant]
  9. ARAVA [Concomitant]
  10. TYLENOL (CAPLET) [Concomitant]
  11. FOSAMAX [Concomitant]
  12. ROLAIDS [Concomitant]
  13. PROPOXY [Concomitant]

REACTIONS (3)
  - CHRONIC OBSTRUCTIVE AIRWAYS DISEASE EXACERBATED [None]
  - NON-SMALL CELL LUNG CANCER STAGE IIIB [None]
  - THROMBOCYTOPENIA [None]
